FAERS Safety Report 5006880-3 (Version None)
Quarter: 2006Q2

REPORT INFORMATION
  Report Type: 
  Country: None (occurrence: None)
  Receive Date: 20060516
  Receipt Date: 20060508
  Transmission Date: 20061013
  Serious: Yes (Death)
  Sender: FDA-Public Use
  Company Number: USA-2006-0023422

PATIENT
  Age: 41 Year
  Sex: Male
  Weight: 63.5 kg

DRUGS (11)
  1. OXYCONTIN [Suspect]
     Indication: HEADACHE
     Dosage: 20 MG, BID,
     Dates: start: 20050624
  2. MORPHINE SULFATE [Suspect]
  3. HEROIN              (DIAMORPHINE) [Suspect]
  4. CITALOPRAM HYDROBROMIDE [Suspect]
  5. LEXAPRO [Concomitant]
  6. COUMADIN [Concomitant]
  7. PAMELOR [Concomitant]
  8. KLONOPIN [Concomitant]
  9. CYCLOBENZAPRINE HCL [Concomitant]
  10. IMITREX [Concomitant]
  11. NORVASC [Concomitant]

REACTIONS (2)
  - DRUG TOXICITY [None]
  - MULTIPLE DRUG OVERDOSE [None]
